FAERS Safety Report 14106481 (Version 1)
Quarter: 2017Q4

REPORT INFORMATION
  Report Type: Spontaneous
  Country: US (occurrence: US)
  Receive Date: 20171019
  Receipt Date: 20171019
  Transmission Date: 20180321
  Serious: No
  Sender: FDA-Public Use
  Company Number: US-JNJFOC-20171013326

PATIENT
  Age: 24 Month
  Sex: Male

DRUGS (1)
  1. CHILDRENS SUDAFED NASAL DECONGESTANT [Suspect]
     Active Substance: PSEUDOEPHEDRINE HYDROCHLORIDE
     Indication: PRODUCT USED FOR UNKNOWN INDICATION
     Route: 065

REACTIONS (6)
  - Off label use [Unknown]
  - Drug administered to patient of inappropriate age [Unknown]
  - Product physical issue [Unknown]
  - Product container issue [Unknown]
  - Product use complaint [None]
  - Wrong technique in product usage process [Unknown]
